FAERS Safety Report 11745832 (Version 1)
Quarter: 2015Q4

REPORT INFORMATION
  Report Type: Spontaneous
  Country: US (occurrence: None)
  Receive Date: 20151116
  Receipt Date: 20151116
  Transmission Date: 20160304
  Serious: No
  Sender: FDA-Public Use
  Company Number: None

PATIENT
  Age: 53 Year
  Sex: Female

DRUGS (1)
  1. HUMIRA [Suspect]
     Active Substance: ADALIMUMAB
     Dosage: 40MG  (0.8ML)
     Route: 058
     Dates: start: 20150112, end: 20151112

REACTIONS (4)
  - Ocular hyperaemia [None]
  - Dry eye [None]
  - Corneal abrasion [None]
  - Eye pruritus [None]

NARRATIVE: CASE EVENT DATE: 20151029
